FAERS Safety Report 25897537 (Version 1)
Quarter: 2025Q4

REPORT INFORMATION
  Report Type: Spontaneous
  Country: US (occurrence: US)
  Receive Date: 20251008
  Receipt Date: 20251008
  Transmission Date: 20260118
  Serious: No
  Sender: APOTEX
  Company Number: US-APOTEX-2025AP030815

PATIENT
  Age: 17 Year
  Sex: Male

DRUGS (9)
  1. RISPERIDONE [Suspect]
     Active Substance: RISPERIDONE
     Indication: Bipolar I disorder
     Dosage: UNK
     Route: 065
     Dates: start: 2023, end: 2023
  2. RISPERIDONE [Suspect]
     Active Substance: RISPERIDONE
     Dosage: 1 MILLIGRAM, BID
     Route: 065
     Dates: start: 2023, end: 2023
  3. DIVALPROEX SODIUM [Suspect]
     Active Substance: DIVALPROEX SODIUM
     Indication: Bipolar I disorder
     Dosage: UNK
     Route: 065
     Dates: start: 2023, end: 2023
  4. DIVALPROEX SODIUM [Suspect]
     Active Substance: DIVALPROEX SODIUM
     Dosage: 500 MILLIGRAM, BID
     Route: 065
     Dates: start: 2023, end: 2023
  5. HALOPERIDOL [Concomitant]
     Active Substance: HALOPERIDOL
     Indication: Bipolar I disorder
     Dosage: 5 MILLIGRAM
     Route: 030
     Dates: start: 2023
  6. MIDAZOLAM [Concomitant]
     Active Substance: MIDAZOLAM
     Indication: Bipolar I disorder
     Dosage: 2 MILLIGRAM
     Route: 030
     Dates: start: 2023
  7. LORAZEPAM [Concomitant]
     Active Substance: LORAZEPAM
     Indication: Bipolar I disorder
     Dosage: 1 MILLIGRAM, QID AS NEEDED
     Route: 042
     Dates: start: 2023
  8. LORAZEPAM [Concomitant]
     Active Substance: LORAZEPAM
     Dosage: 1 MILLIGRAM, QID (EVERY 6 HOURS)
     Route: 042
     Dates: start: 2023
  9. LORAZEPAM [Concomitant]
     Active Substance: LORAZEPAM
     Dosage: 2 MILLIGRAM, QID (EVERY 6 HOURS)
     Route: 042
     Dates: start: 2023

REACTIONS (3)
  - Hyperammonaemia [Unknown]
  - Catatonia [Recovered/Resolved]
  - Condition aggravated [Recovered/Resolved]

NARRATIVE: CASE EVENT DATE: 20230101
